FAERS Safety Report 7164220-8 (Version None)
Quarter: 2010Q4

REPORT INFORMATION
  Report Type: 
  Country: None (occurrence: None)
  Receive Date: 20101215
  Receipt Date: 20101206
  Transmission Date: 20110411
  Serious: Yes (Hospitalization, Other)
  Sender: FDA-Public Use
  Company Number: US-ACTELION-A-US2008-22829

PATIENT

DRUGS (28)
  1. BOSENTAN TABLET 125 MG US [Suspect]
     Indication: PULMONARY ARTERIAL HYPERTENSION
     Dosage: 125 MG, BID
     Route: 048
     Dates: start: 20070601
  2. REVATIO [Concomitant]
  3. ADVAIR [Concomitant]
  4. ASPIRIN [Concomitant]
  5. CALCIUM W/VITAMIN D [Concomitant]
  6. CHLOR-TRIMETON [Concomitant]
  7. FLUTICASONE PROPIONATE [Concomitant]
  8. GLUCOSAMINE W/CHONDROITIN SULFATE [Concomitant]
  9. METROGEL [Concomitant]
  10. MULTI-VITAMIN [Concomitant]
  11. OMEPRAZOLE [Concomitant]
  12. SENOKOT [Concomitant]
  13. SLO-MAG [Concomitant]
  14. SPIRONOLACTONE [Concomitant]
  15. TORSEMIDE [Concomitant]
  16. ARMOUR THYROID [Concomitant]
  17. TYLENOL (CAPLET) [Concomitant]
  18. VITAMIN B6 [Concomitant]
  19. COLACE [Concomitant]
  20. IPRATROPIUM BROMIDE [Concomitant]
  21. ALBUTEROL [Concomitant]
  22. WARFARIN SODIUM [Concomitant]
  23. SOTALOL [Concomitant]
  24. NYSTATIN [Concomitant]
  25. K-DUR [Concomitant]
  26. CLINDAMYCIN [Concomitant]
  27. OXYGEN [Concomitant]
  28. BETAPACE [Concomitant]

REACTIONS (17)
  - ASPIRATION PLEURAL CAVITY [None]
  - ATRIAL FIBRILLATION [None]
  - ATRIAL FLUTTER [None]
  - CARDIAC FAILURE CONGESTIVE [None]
  - CARDIAC PACEMAKER INSERTION [None]
  - CARDIOVERSION [None]
  - CELLULITIS [None]
  - CHEST PAIN [None]
  - COSTOCHONDRITIS [None]
  - DEBRIDEMENT [None]
  - FALL [None]
  - LIMB INJURY [None]
  - PERICARDIAL EFFUSION [None]
  - PLEURAL EFFUSION [None]
  - RIB FRACTURE [None]
  - SPINAL FRACTURE [None]
  - WEIGHT DECREASED [None]
